FAERS Safety Report 14329040 (Version 2)
Quarter: 2018Q1

REPORT INFORMATION
  Report Type: Spontaneous
  Country: IT (occurrence: IT)
  Receive Date: 20171227
  Receipt Date: 20180214
  Transmission Date: 20180509
  Serious: Yes (Other)
  Sender: FDA-Public Use
  Company Number: IT-PFIZER INC-2017543998

PATIENT
  Age: 76 Year
  Sex: Female
  Weight: 74 kg

DRUGS (3)
  1. PERTUZUMAB. [Suspect]
     Active Substance: PERTUZUMAB
     Indication: BREAST CANCER
     Dosage: 840 MG, CYCLIC
     Route: 042
     Dates: start: 20170711
  2. PACLITAXEL. [Suspect]
     Active Substance: PACLITAXEL
     Indication: BREAST CANCER
     Dosage: 135 MG, CYCLIC
     Route: 042
     Dates: start: 20170711
  3. TRASTUZUMAB. [Suspect]
     Active Substance: TRASTUZUMAB
     Indication: BREAST CANCER
     Dosage: 590 MG, CYCLIC
     Route: 042
     Dates: start: 20170711

REACTIONS (3)
  - Pyrexia [Recovering/Resolving]
  - Neutropenia [Recovering/Resolving]
  - Cystitis [Recovering/Resolving]

NARRATIVE: CASE EVENT DATE: 20170723
